FAERS Safety Report 25806638 (Version 1)
Quarter: 2025Q3

REPORT INFORMATION
  Report Type: Spontaneous
  Country: US (occurrence: None)
  Receive Date: 20250915
  Receipt Date: 20250915
  Transmission Date: 20251021
  Serious: No
  Sender: FDA-CTU
  Company Number: None

PATIENT
  Age: 69 Year
  Sex: Male

DRUGS (2)
  1. ABIRATERONE ACETATE [Suspect]
     Active Substance: ABIRATERONE ACETATE
     Dosage: 1000 MG DAILY ORAL ?
     Route: 048
     Dates: start: 20250820
  2. ABIRATERONE [Concomitant]
     Active Substance: ABIRATERONE
     Dates: start: 20250820

REACTIONS (1)
  - Colitis [None]

NARRATIVE: CASE EVENT DATE: 20250915
